FAERS Safety Report 7908483-7 (Version None)
Quarter: 2011Q4

REPORT INFORMATION
  Report Type: 
  Country: None (occurrence: None)
  Receive Date: 20111111
  Receipt Date: 20111104
  Transmission Date: 20120403
  Serious: Yes (Other)
  Sender: FDA-Public Use
  Company Number: FR-JNJFOC-20110303853

PATIENT
  Age: 14 Year
  Sex: Female

DRUGS (2)
  1. TOPIRAMATE [Suspect]
     Indication: MIGRAINE PROPHYLAXIS
     Route: 048
     Dates: start: 20090330, end: 20100225
  2. KETOPROFEN [Concomitant]
     Route: 065

REACTIONS (6)
  - DEPRESSION [None]
  - SUICIDE ATTEMPT [None]
  - DECREASED APPETITE [None]
  - BULIMIA NERVOSA [None]
  - MENTAL DISORDER [None]
  - FATIGUE [None]
